FAERS Safety Report 8018423-0 (Version None)
Quarter: 2011Q4

REPORT INFORMATION
  Report Type: 
  Country: None (occurrence: None)
  Receive Date: 20111227
  Receipt Date: 20111218
  Transmission Date: 20120403
  Serious: Yes (Death, Hospitalization)
  Sender: FDA-Public Use
  Company Number: 2011ST000560

PATIENT

DRUGS (5)
  1. CYCLOSPORINE [Concomitant]
  2. CORTICOSTEROID [Concomitant]
  3. TACROLIMUS [Concomitant]
  4. ABELCET [Suspect]
     Indication: FUNGAL INFECTION
     Dosage: 225 MG/KG, QD, IV
     Route: 042
     Dates: start: 19960704, end: 19960708
  5. ABELCET [Suspect]
     Indication: FUNGAL INFECTION
     Dosage: 225 MG/KG, QD, IV
     Route: 042
     Dates: start: 19960709

REACTIONS (1)
  - BLOOD CREATININE INCREASED [None]
